FAERS Safety Report 5105261-1 (Version None)
Quarter: 2006Q3

REPORT INFORMATION
  Report Type: 
  Country: None (occurrence: None)
  Receive Date: 20060911
  Receipt Date: 20060828
  Transmission Date: 20061208
  Serious: Yes (Death, Life-Threatening, Hospitalization)
  Sender: FDA-Public Use
  Company Number: HQWYE682206FEB06

PATIENT
  Age: 77 Year
  Sex: Female
  Weight: 62.02 kg

DRUGS (7)
  1. MYLOTARG [Suspect]
     Indication: ACUTE MYELOID LEUKAEMIA
     Dosage: 9 MG/M^2 1X PER 1 DAY, INTRAVENOUS
     Route: 042
     Dates: start: 20051229, end: 20051229
  2. ELSPAR [Concomitant]
  3. ELSPAR [Concomitant]
  4. CYTARABINE [Concomitant]
  5. CYTARABINE [Concomitant]
  6. NOVANTRONE [Concomitant]
  7. NOVANTRONE [Concomitant]

REACTIONS (15)
  - ALANINE AMINOTRANSFERASE INCREASED [None]
  - APPARENT LIFE THREATENING EVENT [None]
  - ASPARTATE AMINOTRANSFERASE INCREASED [None]
  - BACTERIAL INFECTION [None]
  - BLOOD ALKALINE PHOSPHATASE INCREASED [None]
  - BLOOD BILIRUBIN INCREASED [None]
  - BRONCHOALVEOLAR LAVAGE ABNORMAL [None]
  - CULTURE POSITIVE [None]
  - HAEMOPTYSIS [None]
  - NEUTROPHIL COUNT DECREASED [None]
  - PNEUMONIA FUNGAL [None]
  - PYREXIA [None]
  - SEPSIS [None]
  - WEIGHT INCREASED [None]
  - WHITE BLOOD CELL COUNT DECREASED [None]
